FAERS Safety Report 7403726-0 (Version None)
Quarter: 2011Q2

REPORT INFORMATION
  Report Type: 
  Country: None (occurrence: None)
  Receive Date: 20110408
  Receipt Date: 20110404
  Transmission Date: 20111010
  Serious: Yes (Death, Hospitalization)
  Sender: FDA-Public Use
  Company Number: GR-BRISTOL-MYERS SQUIBB COMPANY-15566128

PATIENT
  Age: 67 Year
  Sex: Male
  Weight: 68 kg

DRUGS (3)
  1. ALIMTA [Suspect]
     Indication: NON-SMALL CELL LUNG CANCER
     Dosage: LAST RECEIVED ON 21DEC2010 NO OF INF:6; ON 01FEB2011 DRUG HELD.
     Dates: start: 20100825
  2. CISPLATIN [Suspect]
     Indication: NON-SMALL CELL LUNG CANCER
     Dosage: LAST INF ON 21DEC2010 NO.OF INF:6; ON 01FEB2011 DRUG HELD.
     Dates: start: 20100825
  3. NECITUMUMAB [Suspect]
     Indication: NON-SMALL CELL LUNG CANCER
     Dosage: ON 01FEB2011 DRUG HELD.
     Dates: start: 20100825, end: 20110118

REACTIONS (6)
  - HAEMOGLOBIN DECREASED [None]
  - FEBRILE NEUTROPENIA [None]
  - CARDIO-RESPIRATORY ARREST [None]
  - HAEMATOCRIT DECREASED [None]
  - HEPATITIS B [None]
  - RED BLOOD CELL COUNT DECREASED [None]
